FAERS Safety Report 10335637 (Version 3)
Quarter: 2014Q4

REPORT INFORMATION
  Report Type: Spontaneous
  Country: DE (occurrence: DE)
  Receive Date: 20140723
  Receipt Date: 20141009
  Transmission Date: 20150528
  Serious: Yes (Disabling)
  Sender: FDA-Public Use
  Company Number: DE-PFIZER INC-2014173137

PATIENT
  Age: 87 Year
  Sex: Female

DRUGS (1)
  1. XALATAN [Suspect]
     Active Substance: LATANOPROST
     Dosage: 1X/DAY, LONG-TERM MEDICATION

REACTIONS (3)
  - Visual impairment [Not Recovered/Not Resolved]
  - Eye irritation [Unknown]
  - Product formulation issue [Unknown]

NARRATIVE: CASE EVENT DATE: 201403
